FAERS Safety Report 10454992 (Version 2)
Quarter: 2014Q3

REPORT INFORMATION
  Report Type: Report from Study
  Country: US (occurrence: US)
  Receive Date: 20140915
  Receipt Date: 20140915
  Transmission Date: 20150326
  Serious: Yes (Other)
  Sender: FDA-Public Use
  Company Number: US-ALEXION PHARMACEUTICALS INC-A200700290

PATIENT
  Sex: Male

DRUGS (3)
  1. COUMADIN [Concomitant]
     Active Substance: WARFARIN SODIUM
     Indication: PRODUCT USED FOR UNKNOWN INDICATION
     Dosage: 10 MG, QD
     Dates: end: 2008
  2. DOXEPIN [Concomitant]
     Active Substance: DOXEPIN
     Indication: RASH
     Dosage: 10 MG, BID
  3. SOLIRIS [Suspect]
     Active Substance: ECULIZUMAB
     Indication: PAROXYSMAL NOCTURNAL HAEMOGLOBINURIA
     Dosage: UNK
     Route: 042

REACTIONS (17)
  - Biopsy [Unknown]
  - Somnolence [Unknown]
  - Transfusion [Unknown]
  - Blood urine present [Recovered/Resolved]
  - Asthenia [Unknown]
  - Pain [Unknown]
  - Prostatomegaly [Unknown]
  - Blood iron increased [Unknown]
  - Hypersensitivity [Unknown]
  - Pruritus [Unknown]
  - Headache [Unknown]
  - Haemoglobin decreased [Unknown]
  - Peripheral swelling [Not Recovered/Not Resolved]
  - Joint swelling [Not Recovered/Not Resolved]
  - Rash [Not Recovered/Not Resolved]
  - Dizziness [Recovered/Resolved]
  - Fatigue [Unknown]
